FAERS Safety Report 13026652 (Version 1)
Quarter: 2016Q4

REPORT INFORMATION
  Report Type: Spontaneous
  Country: US (occurrence: US)
  Receive Date: 20161214
  Receipt Date: 20161214
  Transmission Date: 20170207
  Serious: Yes (Other)
  Sender: FDA-Public Use
  Company Number: US-BAYER-2016-229922

PATIENT
  Age: 48 Year
  Sex: Female

DRUGS (5)
  1. LYRICA [Suspect]
     Active Substance: PREGABALIN
  2. PENICILLIN NOS [Suspect]
     Active Substance: PENICILLIN
     Dosage: UNK
     Dates: start: 20160406
  3. CYCLOBENZAPRINE [Suspect]
     Active Substance: CYCLOBENZAPRINE
     Dosage: UNK
     Dates: start: 20160406
  4. BAYER ASPIRIN [Suspect]
     Active Substance: ASPIRIN
     Dosage: UNK
     Dates: start: 20160406
  5. CIPRO [Suspect]
     Active Substance: CIPROFLOXACIN HYDROCHLORIDE
     Dosage: UNK
     Dates: start: 20160406

REACTIONS (11)
  - Arthralgia [None]
  - Emphysema [None]
  - Muscle spasms [None]
  - Sciatica [None]
  - Back pain [None]
  - Generalised anxiety disorder [None]
  - Bipolar disorder [None]
  - Drug hypersensitivity [Unknown]
  - Peripheral vascular disorder [None]
  - Vitamin B complex deficiency [None]
  - Irritable bowel syndrome [None]

NARRATIVE: CASE EVENT DATE: 20160505
